FAERS Safety Report 14201785 (Version 3)
Quarter: 2017Q4

REPORT INFORMATION
  Report Type: Spontaneous
  Country: US (occurrence: US)
  Receive Date: 20171117
  Receipt Date: 20171229
  Transmission Date: 20180321
  Serious: Yes (Hospitalization, Other)
  Sender: FDA-Public Use
  Company Number: US-OMEROS CORPORATION-2017OME00021

PATIENT
  Age: 89 Year
  Sex: Male

DRUGS (19)
  1. LO-DOSE ASPIRIN [Concomitant]
     Dosage: 81 MG, 1X/DAY
     Route: 048
  2. CYCLOGYL [Concomitant]
     Active Substance: CYCLOPENTOLATE HYDROCHLORIDE
     Dosage: 2 ML, LEFT EYE
  3. VISCOAT [Concomitant]
     Dosage: UNK UNK, ONCE
     Route: 031
     Dates: start: 20170926, end: 20170926
  4. KETOROLAC [Concomitant]
     Active Substance: KETOROLAC\KETOROLAC TROMETHAMINE
     Dosage: 1 DROP, 4X/DAY, LEFT EYE
  5. OMIDRIA [Suspect]
     Active Substance: KETOROLAC\PHENYLEPHRINE
     Indication: CATARACT OPERATION
     Dosage: UNK, ONCE, LEFT EYE
     Route: 031
     Dates: start: 20170926, end: 20170926
  6. OMIDRIA [Suspect]
     Active Substance: KETOROLAC\PHENYLEPHRINE
     Indication: INTRAOCULAR LENS IMPLANT
  7. STERILE SALINE [Concomitant]
     Dosage: UNK UNK, ONCE
     Dates: start: 20170926, end: 20170926
  8. PRESERVATIVE FREE INTRAOCULAR LIDOCAINE [Concomitant]
     Dosage: 4 ML, ONCE
     Route: 031
     Dates: start: 20170926, end: 20170926
  9. DUOVISC [Concomitant]
     Active Substance: CHONDROITIN SULFATE A\HYALURONATE SODIUM
     Dosage: UNK UNK, ONCE
     Dates: start: 20170926, end: 20170926
  10. LEVOTHYROXINE. [Concomitant]
     Active Substance: LEVOTHYROXINE
     Dosage: UNK
     Route: 048
  11. ALCON BSS [Concomitant]
     Dosage: UNK, ONCE
     Route: 031
     Dates: start: 20170926, end: 20170926
  12. BETADINE [Concomitant]
     Active Substance: POVIDONE-IODINE
     Dosage: UNK, ONCE
     Route: 061
     Dates: start: 20170926, end: 20170926
  13. FISH OIL [Concomitant]
     Active Substance: FISH OIL
     Dosage: 500 MG, 1X/DAY
     Route: 048
  14. OFLOXACIN. [Concomitant]
     Active Substance: OFLOXACIN
     Dosage: 1 DROP, 4X/DAY, BOTH EYES
  15. UNSPECIFIED STEROID [Suspect]
     Active Substance: UNSPECIFIED INGREDIENT
     Dosage: UNK
     Dates: start: 2017
  16. COENZYME Q10 [Concomitant]
     Active Substance: UBIDECARENONE
     Dosage: 150 MG, 1X/DAY
     Route: 048
  17. VITAMIN B12 [Concomitant]
     Active Substance: CYANOCOBALAMIN
     Dosage: 1 TABLETS, 1X/DAY
     Route: 048
  18. DORZOLAMIDE-TIMOLOL [Concomitant]
     Active Substance: DORZOLAMIDE\TIMOLOL
     Dosage: 1 DROP, 2X/DAY, RIGHT EYE
  19. LATANOPROST. [Concomitant]
     Active Substance: LATANOPROST
     Dosage: 1 DROP, 1X/DAY, RIGHT EYE AT BEDTIME

REACTIONS (12)
  - Retinal drusen [Recovered/Resolved]
  - Toxic anterior segment syndrome [Unknown]
  - Corneal oedema [Recovered/Resolved]
  - Gram stain [Recovered/Resolved]
  - Endophthalmitis [Recovered/Resolved]
  - Glaucoma [Recovering/Resolving]
  - Confusional state [Recovered/Resolved]
  - Anterior chamber inflammation [Recovered/Resolved]
  - Vitreous floaters [Recovered/Resolved]
  - Vitreous opacities [Recovered/Resolved]
  - Fibrin [Recovered/Resolved]
  - Anterior chamber cell [Recovered/Resolved]

NARRATIVE: CASE EVENT DATE: 20170927
